FAERS Safety Report 5455408-2 (Version None)
Quarter: 2007Q3

REPORT INFORMATION
  Report Type: 
  Country: None (occurrence: None)
  Receive Date: 20070918
  Receipt Date: 20070228
  Transmission Date: 20080115
  Serious: Yes (Other)
  Sender: FDA-Public Use
  Company Number: US-ASTRAZENECA-2006UW21063

PATIENT
  Age: 15260 Day
  Sex: Female
  Weight: 57.7 kg

DRUGS (6)
  1. SEROQUEL [Suspect]
     Indication: DEPRESSION
     Dosage: 100-200 MG
     Route: 048
     Dates: end: 20041101
  2. SEROQUEL [Suspect]
     Indication: INSOMNIA
     Dosage: 100-200 MG
     Route: 048
     Dates: end: 20041101
  3. ZYPREXA [Concomitant]
  4. DOXEPIN HCL [Concomitant]
  5. LEXAPRO [Concomitant]
  6. DIAZEPAM [Concomitant]

REACTIONS (1)
  - PANCREATITIS [None]
